FAERS Safety Report 9854939 (Version 1)
Quarter: 2013Q4

REPORT INFORMATION
  Report Type: Spontaneous
  Country: US (occurrence: None)
  Receive Date: 20131226
  Receipt Date: 20131226
  Transmission Date: 20140711
  Serious: Yes (Other)
  Sender: FDA-Public Use
  Company Number: PHEH2013US011948

PATIENT
  Age: 56 Year
  Sex: Female
  Weight: 74.5 kg

DRUGS (3)
  1. AFINITOR (RAD) UNKNOWN [Suspect]
     Indication: BREAST CANCER METASTATIC
     Route: 048
     Dates: start: 20130226, end: 20130424
  2. EFFEXOR (VENLAFAXINE HYDROCHLORIDE) UNKNOWN [Concomitant]
  3. ALPROZOLAM (ALPRAZOLAM) [Concomitant]

REACTIONS (6)
  - Pneumonitis [None]
  - Dyspnoea [None]
  - Chest discomfort [None]
  - Wheezing [None]
  - Cough [None]
  - Crepitations [None]
